FAERS Safety Report 9668889 (Version 2)
Quarter: 2013Q4

REPORT INFORMATION
  Report Type: Report from Study
  Country: BR (occurrence: BR)
  Receive Date: 20131105
  Receipt Date: 20131202
  Transmission Date: 20140711
  Serious: Yes (Other)
  Sender: FDA-Public Use
  Company Number: PHHY2013BR124712

PATIENT
  Sex: Female
  Weight: 58 kg

DRUGS (1)
  1. FORASEQ [Suspect]
     Indication: ASTHMA
     Dosage: 1 IN THE MORNING AND SOMETIMES AT NIGHT

REACTIONS (4)
  - Dementia Alzheimer^s type [Not Recovered/Not Resolved]
  - Memory impairment [Not Recovered/Not Resolved]
  - Anxiety [Recovering/Resolving]
  - Hypertension [Recovering/Resolving]
